FAERS Safety Report 5284366-9 (Version None)
Quarter: 2007Q1

REPORT INFORMATION
  Report Type: 
  Country: None (occurrence: None)
  Receive Date: 20070327
  Receipt Date: 20070313
  Transmission Date: 20070707
  Serious: Yes (Hospitalization)
  Sender: FDA-Public Use
  Company Number: S07-FRA-01270-01

PATIENT
  Age: 18 Year
  Sex: Female
  Weight: 46 kg

DRUGS (3)
  1. ESCITALOPRAM [Suspect]
     Dates: start: 20070201, end: 20070222
  2. ZYPREXA [Suspect]
     Indication: HALLUCINATION
     Dosage: 5 MG QD;PO
     Route: 048
     Dates: start: 20070219, end: 20070220
  3. SPEKTRAMOX [Suspect]
     Indication: ACUTE SINUSITIS
     Dosage: 1 G TID; PO
     Route: 048
     Dates: start: 20070217, end: 20070221

REACTIONS (2)
  - ACUTE SINUSITIS [None]
  - NEUTROPENIA [None]
